FAERS Safety Report 4947705-1 (Version None)
Quarter: 2006Q1

REPORT INFORMATION
  Report Type: 
  Country: None (occurrence: None)
  Receive Date: 20060320
  Receipt Date: 20060126
  Transmission Date: 20060701
  Serious: Yes (Death)
  Sender: FDA-Public Use
  Company Number: US-AVENTIS-200610961US

PATIENT
  Sex: Male

DRUGS (10)
  1. LOVENOX [Suspect]
     Indication: HIP ARTHROPLASTY
     Route: 058
     Dates: start: 20051213, end: 20060101
  2. TORADOL [Concomitant]
     Dosage: DOSE: UNKNOWN
  3. KEFZOL [Concomitant]
     Dosage: DOSE: UNKNOWN
  4. INAPSIN [Concomitant]
     Dosage: DOSE: UNKNOWN
  5. MORPHINE [Concomitant]
     Dosage: DOSE: UNKNOWN
  6. COLACE [Concomitant]
     Dosage: DOSE: UNKNOWN
  7. FERROUS SULFATE TAB [Concomitant]
     Dosage: DOSE: UNKNOWN
  8. BENADRYL [Concomitant]
     Dosage: DOSE: UNKNOWN
  9. RESTORIL [Concomitant]
     Dosage: DOSE: UNKNOWN
  10. DARVOCET [Concomitant]
     Dosage: DOSE: UNKNOWN

REACTIONS (5)
  - CIRCULATORY COLLAPSE [None]
  - DYSPNOEA [None]
  - LETHARGY [None]
  - MALAISE [None]
  - PULMONARY EMBOLISM [None]
